FAERS Safety Report 19441671 (Version 5)
Quarter: 2021Q4

REPORT INFORMATION
  Report Type: Spontaneous
  Country: DK (occurrence: DK)
  Receive Date: 20210621
  Receipt Date: 20211220
  Transmission Date: 20220303
  Serious: Yes (Life-Threatening, Hospitalization)
  Sender: FDA-Public Use
  Company Number: DK-NOVOPROD-821997

PATIENT
  Age: 83 Year
  Sex: Male

DRUGS (24)
  1. NOVORAPID [Suspect]
     Active Substance: INSULIN ASPART
     Indication: Type 2 diabetes mellitus
     Dosage: UNK (ACCORDING TO WHAT THE PATIENT WILL EAT)
     Route: 058
     Dates: start: 2014
  2. TRESIBA [Suspect]
     Active Substance: INSULIN DEGLUDEC
     Indication: Type 2 diabetes mellitus
     Dosage: 70 IU, QD
     Route: 065
     Dates: start: 20201002
  3. MAGNESIA [MAGNESIUM OXIDE] [Concomitant]
     Indication: Constipation
     Dosage: 1500 MG, QD
     Route: 065
     Dates: start: 20141125
  4. SODIUM PICOSULFATE [Concomitant]
     Active Substance: SODIUM PICOSULFATE
     Indication: Constipation
     Dosage: 10DROPS IN THE MORNING
     Route: 065
     Dates: start: 20201002
  5. MICROLAX [SODIUM CITRATE;SODIUM LAURYL SULFOACETATE] [Concomitant]
     Indication: Constipation
     Dosage: UNK
     Dates: start: 20200304
  6. POTASSIUM CHLORIDE [Concomitant]
     Active Substance: POTASSIUM CHLORIDE
     Indication: Mineral supplementation
     Dosage: UNK (750 MG 4 TABLETS)
     Route: 065
     Dates: start: 20190304
  7. FARMIDUR [Concomitant]
     Indication: Angina pectoris
     Dosage: 120 MG, QD
     Route: 065
     Dates: start: 20190413
  8. VENLAFAXINE HYDROCHLORIDE [Concomitant]
     Active Substance: VENLAFAXINE HYDROCHLORIDE
     Dosage: 37.5 MG, QD
     Route: 065
     Dates: start: 20201218
  9. VENLAFAXINE HYDROCHLORIDE [Concomitant]
     Active Substance: VENLAFAXINE HYDROCHLORIDE
     Indication: Depression
     Dosage: 75 MG, QD
     Route: 065
     Dates: start: 20201001
  10. VENLAFAXINE HYDROCHLORIDE [Concomitant]
     Active Substance: VENLAFAXINE HYDROCHLORIDE
     Dosage: 37.5 MG, QD
     Route: 065
     Dates: start: 20201218
  11. ELIQUIS [Concomitant]
     Active Substance: APIXABAN
     Indication: Thrombosis
     Dosage: 2.5 MG, BID
     Route: 065
     Dates: start: 20201002
  12. LANSOPRAZOLE [Concomitant]
     Active Substance: LANSOPRAZOLE
     Indication: Gastric ulcer
     Dosage: 15 MG, BID
     Route: 065
     Dates: start: 20201002
  13. MIRTAZAPINE [Concomitant]
     Active Substance: MIRTAZAPINE
     Indication: Sedative therapy
     Dosage: 15 MG, QD
     Route: 065
     Dates: start: 20201005
  14. LYRICA [Concomitant]
     Active Substance: PREGABALIN
     Indication: Pain
     Dosage: 75 MG, TID
     Route: 065
     Dates: start: 20201030
  15. DAPAGLIFLOZIN [Concomitant]
     Active Substance: DAPAGLIFLOZIN
     Indication: Type 2 diabetes mellitus
     Dosage: 10 MG, QD
     Route: 065
     Dates: start: 20210222
  16. ACETAMINOPHEN [Concomitant]
     Active Substance: ACETAMINOPHEN
     Indication: Pain
     Dosage: UNK(AS NEEDED)
     Route: 065
     Dates: start: 20140927
  17. CARBOXYMETHYLCELLULOSE SODIUM [Concomitant]
     Active Substance: CARBOXYMETHYLCELLULOSE SODIUM
     Indication: Eye disorder
     Dosage: UNK(AS NEEDED)
     Route: 065
     Dates: start: 20170613
  18. NITROLINGUAL [Concomitant]
     Active Substance: NITROGLYCERIN
     Indication: Myocardial infarction
     Dosage: UNK
     Route: 060
     Dates: start: 20181128
  19. DIURAL [ACETAZOLAMIDE] [Concomitant]
     Indication: Diuretic therapy
     Dosage: 40 MG, BID
     Route: 065
     Dates: start: 20190515
  20. OXAZEPAM [Concomitant]
     Active Substance: OXAZEPAM
     Indication: Anxiety
     Dosage: 15 MG
     Dates: start: 20200109
  21. GANGIDEN [Concomitant]
     Indication: Constipation
     Dosage: UNK
     Route: 065
     Dates: start: 20200304
  22. MORPHINE [Concomitant]
     Active Substance: MORPHINE
     Indication: Angina pectoris
     Dosage: UNK
     Route: 065
     Dates: start: 20200622
  23. NASONEX [Concomitant]
     Active Substance: MOMETASONE FUROATE
     Indication: Rhinorrhoea
     Dosage: UNK(2 PUFFS 2 TIMES A DAY)
     Route: 065
     Dates: start: 20210330
  24. UNIKALK FORTE [Concomitant]
     Indication: Vitamin supplementation
     Dosage: UNK(TABLET A DAY WITH A MEAL)
     Route: 065
     Dates: start: 20210519

REACTIONS (4)
  - Unevaluable event [Recovered/Resolved]
  - Product appearance confusion [Recovered/Resolved]
  - Accidental overdose [Recovered/Resolved]
  - Wrong product administered [Recovered/Resolved]
